FAERS Safety Report 20209413 (Version 2)
Quarter: 2022Q2

REPORT INFORMATION
  Report Type: Spontaneous
  Country: JP (occurrence: JP)
  Receive Date: 20211220
  Receipt Date: 20220404
  Transmission Date: 20220721
  Serious: Yes (Other)
  Sender: FDA-Public Use
  Company Number: JP-ABBVIE-21K-087-4204142-00

PATIENT
  Age: 38 Year
  Sex: Male

DRUGS (1)
  1. HUMIRA [Suspect]
     Active Substance: ADALIMUMAB
     Indication: Crohn^s disease
     Route: 058
     Dates: start: 20120102, end: 20121201

REACTIONS (2)
  - Lymphadenopathy [Recovered/Resolved]
  - Tongue cancer recurrent [Recovered/Resolved]

NARRATIVE: CASE EVENT DATE: 20121201
